FAERS Safety Report 7858459-3 (Version None)
Quarter: 2011Q4

REPORT INFORMATION
  Report Type: 
  Country: None (occurrence: None)
  Receive Date: 20111027
  Receipt Date: 20111017
  Transmission Date: 20120403
  Serious: Yes (Hospitalization)
  Sender: FDA-Public Use
  Company Number: JP-JNJFOC-20101207225

PATIENT
  Sex: Male
  Weight: 50 kg

DRUGS (13)
  1. REMICADE [Suspect]
     Indication: RHEUMATOID ARTHRITIS
     Route: 042
     Dates: start: 20110122
  2. REMICADE [Suspect]
     Dosage: 36TH DOSE AT 2V
     Route: 042
     Dates: start: 20101023
  3. PREDNISOLONE [Suspect]
     Indication: RHEUMATOID ARTHRITIS
     Route: 048
     Dates: start: 20040216
  4. REMICADE [Suspect]
     Dosage: 36TH DOSE AT 2V
     Route: 042
     Dates: start: 20101023
  5. PROGRAF [Suspect]
     Indication: RHEUMATOID ARTHRITIS
     Route: 048
     Dates: start: 20061117
  6. METHOTREXATE [Concomitant]
     Indication: RHEUMATOID ARTHRITIS
     Route: 048
     Dates: start: 20040216
  7. ACTONEL [Concomitant]
     Indication: OSTEOPOROSIS
     Route: 048
     Dates: start: 20081209
  8. REMICADE [Suspect]
     Indication: CROHN'S DISEASE
     Route: 042
     Dates: start: 20060310
  9. LOXONIN [Concomitant]
     Indication: RHEUMATOID ARTHRITIS
     Route: 048
     Dates: start: 20060909
  10. REMICADE [Suspect]
     Route: 042
     Dates: start: 20110122
  11. REMICADE [Suspect]
     Route: 042
     Dates: start: 20060310
  12. FOLIC ACID [Concomitant]
     Indication: FOLATE DEFICIENCY
     Route: 048
     Dates: start: 20040216
  13. NORVASC [Concomitant]
     Indication: HYPERLIPIDAEMIA
     Route: 048
     Dates: start: 20040216

REACTIONS (3)
  - ABDOMINAL PAIN [None]
  - NEOPLASM OF APPENDIX [None]
  - APPENDIX DISORDER [None]
